FAERS Safety Report 12637085 (Version 4)
Quarter: 2016Q3

REPORT INFORMATION
  Report Type: Spontaneous
  Country: US (occurrence: US)
  Receive Date: 20160809
  Receipt Date: 20160921
  Transmission Date: 20161109
  Serious: No
  Sender: FDA-Public Use
  Company Number: US-B.I. PHARMACEUTICALS,INC./RIDGEFIELD-2016-BI-49529BP

PATIENT
  Age: 67 Year
  Sex: Male
  Weight: 76.2 kg

DRUGS (3)
  1. OFEV [Suspect]
     Active Substance: NINTEDANIB
     Indication: PRODUCT USED FOR UNKNOWN INDICATION
     Route: 065
     Dates: start: 2015
  2. SILDENAFIL. [Concomitant]
     Active Substance: SILDENAFIL
     Indication: PRODUCT USED FOR UNKNOWN INDICATION
     Route: 065
  3. TYVASO [Suspect]
     Active Substance: TREPROSTINIL
     Indication: PULMONARY HYPERTENSION
     Dosage: FORMULATION: INHALATION GAS, STRENGTH: 0.6MG/ML; DOSE PER APPLICATION: 18-54 MCG; DAILY DOSE: 72-216
     Route: 055
     Dates: start: 20150803

REACTIONS (3)
  - Ageusia [Unknown]
  - Anosmia [Unknown]
  - Rash pruritic [Unknown]

NARRATIVE: CASE EVENT DATE: 20150803
